FAERS Safety Report 9706603 (Version 1)
Quarter: 2013Q4

REPORT INFORMATION
  Report Type: Report from Study
  Country: US (occurrence: US)
  Receive Date: 20131125
  Receipt Date: 20131125
  Transmission Date: 20140711
  Serious: Yes (Death)
  Sender: FDA-Public Use
  Company Number: US-ROCHE-1307980

PATIENT
  Sex: Male

DRUGS (15)
  1. AVASTIN [Suspect]
     Indication: GLIOBLASTOMA
     Dosage: DOSE: 990 MG (CYCLE 1),
     Route: 042
     Dates: start: 20110714
  2. AVASTIN [Suspect]
     Dosage: DOSE: 1000 (CYCLE 1), SAME DOSE WAS RECIEVED ON 11 AND 25 OF AUG/2011, 08/SEP/2011, 22/SEP/2011, 06/
     Route: 042
     Dates: start: 20110728
  3. AVASTIN [Suspect]
     Dosage: DOSE: 980 MG SAME DOSE WAS RECEIVED ON 09/DEC/2011.
     Route: 042
     Dates: start: 20111125
  4. AVASTIN [Suspect]
     Dosage: DOSE: 950 MG
     Route: 042
     Dates: start: 20120109
  5. AVASTIN [Suspect]
     Dosage: DOSE: 940 MG
     Route: 042
     Dates: start: 20120125
  6. AVASTIN [Suspect]
     Dosage: DOSE: 920 MG SAME DOSE WAS RECEIVED ON 22/FEB/2012
     Route: 042
     Dates: start: 20120208
  7. AVASTIN [Suspect]
     Dosage: DOSE: 920 MG
     Route: 042
     Dates: start: 20091105
  8. CPT-11 [Concomitant]
     Dosage: 125/M2
     Route: 065
     Dates: start: 20110714
  9. CARBOPLATIN [Concomitant]
     Route: 065
     Dates: start: 20110825
  10. ALOXI [Concomitant]
     Route: 042
     Dates: start: 20110714
  11. DECADRON [Concomitant]
     Route: 042
     Dates: start: 20110714
  12. DECADRON [Concomitant]
     Route: 042
     Dates: start: 20110825
  13. EMEND [Concomitant]
     Route: 065
     Dates: start: 20110825, end: 20111219
  14. ATIVAN [Concomitant]
     Route: 065
     Dates: start: 20110922, end: 20111219
  15. TEMODAR [Concomitant]
     Dosage: 100/D
     Route: 048
     Dates: start: 20120109

REACTIONS (1)
  - Disease progression [Fatal]
